FAERS Safety Report 10638029 (Version 1)
Quarter: 2014Q4

REPORT INFORMATION
  Report Type: Spontaneous
  Country: SE (occurrence: SE)
  Receive Date: 20141208
  Receipt Date: 20141208
  Transmission Date: 20150529
  Serious: Yes (Life-Threatening, Disabling)
  Sender: FDA-Public Use
  Company Number: SE-JNJFOC-20141200865

PATIENT
  Age: 51 Year
  Sex: Male

DRUGS (2)
  1. CISORDINOL [Suspect]
     Active Substance: ZUCLOPENTHIXOL
     Indication: MENTAL DISORDER
     Route: 065
     Dates: start: 2003
  2. RISPERDAL CONSTA [Suspect]
     Active Substance: RISPERIDONE
     Indication: MENTAL DISORDER
     Route: 030
     Dates: start: 2003

REACTIONS (2)
  - Nerve injury [Not Recovered/Not Resolved]
  - Brain injury [Not Recovered/Not Resolved]

NARRATIVE: CASE EVENT DATE: 2003
